FAERS Safety Report 8831826 (Version 1)
Quarter: 2012Q4

REPORT INFORMATION
  Report Type: 
  Country: JP (occurrence: JP)
  Receive Date: 20121008
  Receipt Date: 20121008
  Transmission Date: 20130627
  Serious: Yes (Hospitalization)
  Sender: FDA-Public Use
  Company Number: JP-EISAI INC-E2090-02172-SPO-JP

PATIENT
  Age: 60 Year
  Sex: Female

DRUGS (5)
  1. EXCEGRAN [Suspect]
     Indication: CONVULSION PROPHYLAXIS
     Dosage: 100 mg daily
     Route: 048
     Dates: start: 20120512, end: 20120607
  2. SYMMETREL [Suspect]
     Indication: PARKINSONISM POST ENCEPHALITIC
     Dosage: Unknown
     Route: 048
     Dates: start: 2012
  3. NEODOPASOL [Suspect]
     Indication: PARKINSONISM POST ENCEPHALITIC
     Dosage: Unknown
     Route: 048
     Dates: start: 2012
  4. THYRADIN S [Suspect]
     Indication: DRUG USE FOR UNKNOWN INDICATION
     Dosage: Unknown
     Route: 048
  5. GASTER [Suspect]
     Indication: DRUG USE FOR UNKNOWN INDICATION
     Dosage: Unknown
     Route: 048

REACTIONS (1)
  - Erythema multiforme [Recovering/Resolving]
